FAERS Safety Report 11058068 (Version 2)
Quarter: 2015Q2

REPORT INFORMATION
  Report Type: Spontaneous
  Country: TR (occurrence: None)
  Receive Date: 20150415
  Receipt Date: 20150507
  Transmission Date: 20150821
  Serious: Yes (Other)
  Sender: FDA-Public Use
  Company Number: GTI003141

PATIENT
  Sex: Female
  Weight: 2.5 kg

DRUGS (1)
  1. IGIV [Suspect]
     Active Substance: HUMAN IMMUNOGLOBULIN G
     Indication: JAUNDICE
     Route: 042

REACTIONS (3)
  - Appendicitis perforated [None]
  - Thrombocytopenia [None]
  - Leukopenia [None]
